FAERS Safety Report 6027631-X (Version None)
Quarter: 2009Q1

REPORT INFORMATION
  Report Type: 
  Country: None (occurrence: None)
  Receive Date: 20090105
  Receipt Date: 20080703
  Transmission Date: 20090719
  Serious: No
  Sender: FDA-Public Use
  Company Number: US-BAYER-200813007BCC

PATIENT
  Age: 79 Year
  Sex: Female
  Weight: 75 kg

DRUGS (18)
  1. ALEVE [Suspect]
     Indication: ARTHRITIS
     Dosage: TOTAL DAILY DOSE: 220 MG  UNIT DOSE: 220 MG
     Route: 048
     Dates: start: 20060101
  2. ASPIRIN [Suspect]
     Indication: ARTHRITIS
     Dosage: TOTAL DAILY DOSE: 162 MG  UNIT DOSE: 81 MG
     Route: 048
     Dates: start: 20050101
  3. ASPIRIN [Suspect]
     Indication: NASOPHARYNGITIS
     Dosage: UNIT DOSE: 325 MG
     Route: 048
  4. DIOVAN HCT [Concomitant]
  5. AMITRIPTYLINE HCL [Concomitant]
  6. AREDIA [Concomitant]
  7. VITAMIN B-12 [Concomitant]
  8. CIPROFLOXACIN [Concomitant]
  9. FOLIC ACID [Concomitant]
  10. METFORMIN HCL [Concomitant]
  11. URISED [Concomitant]
  12. KIRKLAND MULTIVITAMIN [Concomitant]
  13. NATUREMADE VITAMIN C [Concomitant]
  14. NATUREMADE CALCIUM [Concomitant]
  15. NATUREMADE VITAMIN E [Concomitant]
  16. NATUREMADE FISH OIL [Concomitant]
  17. NATUREMADE MAGNESIUM [Concomitant]
  18. GLUCOSAMINE [Concomitant]

REACTIONS (1)
  - DIARRHOEA [None]
